FAERS Safety Report 9725502 (Version 2)
Quarter: 2013Q4

REPORT INFORMATION
  Report Type: Report from Study
  Country: US (occurrence: US)
  Receive Date: 20131203
  Receipt Date: 20131203
  Transmission Date: 20140711
  Serious: Yes (Hospitalization, Disabling, Other)
  Sender: FDA-Public Use
  Company Number: PHEH2013US005870

PATIENT
  Age: 47 Year
  Sex: Female
  Weight: 88.44 kg

DRUGS (8)
  1. GILENYA [Suspect]
     Indication: MULTIPLE SCLEROSIS
     Dosage: 0.5 MG, QD
     Route: 048
     Dates: start: 20130308
  2. MIRTAZAPINE [Concomitant]
     Dosage: 15 MG, UNK
  3. DIOVAN [Concomitant]
     Dosage: 160 MG, UNK
  4. ZANAFLEX [Concomitant]
     Dosage: 2 MG, UNK
  5. VITAMIN D [Concomitant]
  6. VITAMIN B12 [Concomitant]
  7. MULTI-VIT [Concomitant]
  8. Z-PAK [Concomitant]

REACTIONS (22)
  - Multiple sclerosis relapse [Unknown]
  - Feeling abnormal [Unknown]
  - Depression [Unknown]
  - Memory impairment [Not Recovered/Not Resolved]
  - Aphagia [Unknown]
  - Crying [Unknown]
  - Lacrimation increased [Unknown]
  - Sleep disorder [Unknown]
  - Cognitive disorder [Not Recovered/Not Resolved]
  - Fatigue [Not Recovered/Not Resolved]
  - Pain in extremity [Not Recovered/Not Resolved]
  - Pain [Not Recovered/Not Resolved]
  - Headache [Not Recovered/Not Resolved]
  - Back pain [Not Recovered/Not Resolved]
  - Alopecia [Unknown]
  - Eye pain [Unknown]
  - Limb discomfort [Unknown]
  - Temporomandibular joint syndrome [Not Recovered/Not Resolved]
  - Influenza like illness [Not Recovered/Not Resolved]
  - Asthenia [Unknown]
  - Migraine [Recovered/Resolved]
  - Urinary tract infection [Unknown]
